FAERS Safety Report 18444903 (Version 6)
Quarter: 2022Q4

REPORT INFORMATION
  Report Type: Report from Study
  Country: JP (occurrence: JP)
  Receive Date: 20201030
  Receipt Date: 20221215
  Transmission Date: 20230112
  Serious: Yes (Hospitalization, Other)
  Sender: FDA-Public Use
  Company Number: JP-TAKEDA-2020TJP023012AA

PATIENT
  Age: 66 Year
  Sex: Male
  Weight: 69 kg

DRUGS (22)
  1. LEUPROLIDE ACETATE [Suspect]
     Active Substance: LEUPROLIDE ACETATE
     Indication: Bulbospinal muscular atrophy congenital
     Dosage: 11.25 MILLIGRAM, EVERY 3 MONTHS
     Route: 058
     Dates: start: 20170912, end: 20220413
  2. METHYLCOBALAMIN [Concomitant]
     Active Substance: METHYLCOBALAMIN
     Indication: Neuropathy peripheral
     Dosage: 3 MILLIGRAM
     Route: 065
  3. .ALPHA.-TOCOPHEROL ACETATE [Concomitant]
     Active Substance: .ALPHA.-TOCOPHEROL ACETATE
     Indication: Peripheral vascular disorder
     Dosage: 150 MILLIGRAM
     Route: 065
  4. MAGNESIUM OXIDE [Concomitant]
     Active Substance: MAGNESIUM OXIDE
     Indication: Constipation
     Dosage: 990 MILLIGRAM
     Route: 065
  5. SHAKUYAKUKANZOTO [Concomitant]
     Active Substance: HERBALS
     Indication: Muscle spasms
     Dosage: 2 GRAM
     Route: 065
     Dates: end: 20191217
  6. SHAKUYAKUKANZOTO [Concomitant]
     Active Substance: HERBALS
     Indication: Muscle spasms
     Dosage: 2.5 GRAM
     Route: 065
     Dates: start: 20191218
  7. BEZAFIBRATE [Concomitant]
     Active Substance: BEZAFIBRATE
     Indication: Product used for unknown indication
     Dosage: 400 MILLIGRAM
     Route: 065
  8. BROMHEXINE HYDROCHLORIDE [Concomitant]
     Active Substance: BROMHEXINE HYDROCHLORIDE
     Indication: Bronchitis chronic
     Dosage: 12 MILLIGRAM
     Route: 065
  9. SENNOSIDES A AND B [Concomitant]
     Active Substance: SENNOSIDES A AND B
     Indication: Constipation
     Dosage: 24 MILLIGRAM
     Route: 065
  10. BROTIZOLAM [Concomitant]
     Active Substance: BROTIZOLAM
     Indication: Insomnia
     Dosage: 0.25 MILLIGRAM
     Route: 065
     Dates: end: 20210803
  11. BROTIZOLAM [Concomitant]
     Active Substance: BROTIZOLAM
     Indication: Insomnia
     Dosage: 0.5 MILLIGRAM
     Route: 065
     Dates: start: 20210804
  12. KETOPROFEN [Concomitant]
     Active Substance: KETOPROFEN
     Indication: Periarthritis
     Dosage: UNK
     Route: 065
     Dates: end: 20181009
  13. KETOPROFEN [Concomitant]
     Active Substance: KETOPROFEN
     Indication: Periarthritis
     Dosage: UNK
     Route: 065
     Dates: end: 20181009
  14. LOXOPROFEN SODIUM [Concomitant]
     Active Substance: LOXOPROFEN SODIUM
     Indication: Spinal osteoarthritis
     Dosage: 180 MILLIGRAM
     Route: 065
     Dates: start: 20180308, end: 20180314
  15. LOXOPROFEN SODIUM [Concomitant]
     Active Substance: LOXOPROFEN SODIUM
     Indication: Spinal osteoarthritis
     Dosage: 180 MILLIGRAM
     Route: 065
     Dates: start: 20190123, end: 20190326
  16. REBAMIPIDE [Concomitant]
     Active Substance: REBAMIPIDE
     Indication: Prophylaxis
     Dosage: 300 MILLIGRAM
     Route: 065
     Dates: start: 20180308, end: 20180314
  17. REBAMIPIDE [Concomitant]
     Active Substance: REBAMIPIDE
     Indication: Prophylaxis
     Dosage: 300 MILLIGRAM
     Route: 065
     Dates: start: 20190123, end: 20190326
  18. FELBINAC [Concomitant]
     Active Substance: FELBINAC
     Indication: Product used for unknown indication
     Dosage: UNK
     Route: 065
     Dates: start: 20190123, end: 20190326
  19. FELBINAC [Concomitant]
     Active Substance: FELBINAC
     Indication: Product used for unknown indication
     Dosage: UNK
     Route: 065
     Dates: start: 20190123, end: 20190326
  20. LOXOPROFEN SODIUM [Concomitant]
     Active Substance: LOXOPROFEN SODIUM
     Indication: Product used for unknown indication
     Dosage: UNK
     Route: 065
     Dates: start: 20190703
  21. XELODA [Suspect]
     Active Substance: CAPECITABINE
     Indication: Colon cancer
     Dosage: UNK
     Route: 065
     Dates: start: 20220610
  22. OXALIPLATIN [Suspect]
     Active Substance: OXALIPLATIN
     Indication: Lung neoplasm malignant
     Dosage: UNK
     Route: 065
     Dates: start: 20220610, end: 20220701

REACTIONS (8)
  - Lung neoplasm malignant [Recovering/Resolving]
  - Lung neoplasm malignant [Recovering/Resolving]
  - Muscular weakness [Not Recovered/Not Resolved]
  - Colon cancer [Not Recovered/Not Resolved]
  - Nerve injury [Recovering/Resolving]
  - Decreased appetite [Not Recovered/Not Resolved]
  - Hyperhidrosis [Recovered/Resolved]
  - Anaphylactic reaction [Recovered/Resolved]

NARRATIVE: CASE EVENT DATE: 20200221
